FAERS Safety Report 17968672 (Version 1)
Quarter: 2020Q3

REPORT INFORMATION
  Report Type: Spontaneous
  Country: SI (occurrence: SI)
  Receive Date: 20200701
  Receipt Date: 20200701
  Transmission Date: 20201103
  Serious: Yes (Death, Other)
  Sender: FDA-Public Use
  Company Number: SI-MYLANLABS-2020M1059180

PATIENT
  Age: 73 Year
  Sex: Female

DRUGS (14)
  1. INTERFERON [Suspect]
     Active Substance: INTERFERON
     Dosage: UNK, QW (3X3M WEEKLY)
     Dates: start: 201607
  2. ARANESP [Concomitant]
     Active Substance: DARBEPOETIN ALFA
     Indication: PRODUCT USED FOR UNKNOWN INDICATION
     Dosage: UNK
  3. HYDROXYUREA. [Suspect]
     Active Substance: HYDROXYUREA
     Indication: PRODUCT USED FOR UNKNOWN INDICATION
     Dosage: UNK
     Dates: start: 201609, end: 201702
  4. TACROLIMUS. [Suspect]
     Active Substance: TACROLIMUS
     Indication: PRODUCT USED FOR UNKNOWN INDICATION
     Dosage: UNK
  5. CLOPIDOGREL [Concomitant]
     Active Substance: CLOPIDOGREL BISULFATE
     Indication: PRODUCT USED FOR UNKNOWN INDICATION
     Dosage: UNK
  6. HYDROXYUREA. [Suspect]
     Active Substance: HYDROXYUREA
     Dosage: 1.5 G, QD
  7. THROMBOREDUCTIN [Concomitant]
     Indication: PRODUCT USED FOR UNKNOWN INDICATION
     Dosage: UNK
  8. ANAGRELIDE. [Suspect]
     Active Substance: ANAGRELIDE HYDROCHLORIDE
     Indication: PRODUCT USED FOR UNKNOWN INDICATION
     Dosage: FOR 4 WEEKS
     Dates: start: 201603
  9. INTERFERON [Suspect]
     Active Substance: INTERFERON
     Indication: PRODUCT USED FOR UNKNOWN INDICATION
     Dosage: 3X5 WEEKLY
     Dates: end: 201609
  10. HYDROXYUREA. [Suspect]
     Active Substance: HYDROXYUREA
     Dosage: 2 G, QD
     Dates: start: 201505
  11. JAKAVI [Suspect]
     Active Substance: RUXOLITINIB
     Indication: ESSENTIAL THROMBOCYTHAEMIA
     Dosage: 20 MG, BID
     Dates: start: 201902
  12. BINOCRIT [Suspect]
     Active Substance: ERYTHROPOIETIN
     Indication: ANAEMIA
     Dosage: 30 OT, QW (30.000 IE WEEKLY)
  13. ANAGRELIDE. [Suspect]
     Active Substance: ANAGRELIDE HYDROCHLORIDE
     Dosage: UNK
     Dates: start: 201609, end: 201702
  14. HYDROXYUREA. [Suspect]
     Active Substance: HYDROXYUREA
     Dosage: 2.5 MG, QD

REACTIONS (19)
  - Hepatitis B [Unknown]
  - Hepatic failure [Unknown]
  - Transient ischaemic attack [Unknown]
  - Pancytopenia [Unknown]
  - Enterococcal infection [Unknown]
  - Cytomegalovirus infection [Unknown]
  - Cardiac failure [Unknown]
  - Pneumonia [Fatal]
  - Depression [Unknown]
  - Bronchopulmonary aspergillosis [Unknown]
  - Coronavirus infection [Unknown]
  - Laboratory test abnormal [Unknown]
  - Acute respiratory distress syndrome [Fatal]
  - Epstein-Barr virus infection [Unknown]
  - Herpes simplex [Unknown]
  - Product use in unapproved indication [Unknown]
  - Pneumocystis jirovecii pneumonia [Unknown]
  - Anaemia [Unknown]
  - Candida infection [Unknown]

NARRATIVE: CASE EVENT DATE: 201609
